FAERS Safety Report 11726457 (Version 12)
Quarter: 2017Q2

REPORT INFORMATION
  Report Type: Spontaneous
  Country: US (occurrence: US)
  Receive Date: 20151112
  Receipt Date: 20170410
  Transmission Date: 20170829
  Serious: Yes (Other)
  Sender: FDA-Public Use
  Company Number: PHEH2015US022847

PATIENT
  Sex: Female

DRUGS (4)
  1. ZOFRAN [Suspect]
     Active Substance: ONDANSETRON HYDROCHLORIDE
     Indication: VOMITING IN PREGNANCY
     Dosage: 8 MG, Q12H
     Route: 048
     Dates: start: 20130828
  2. ONDANSETRON HYDROCHLORIDE. [Suspect]
     Active Substance: ONDANSETRON HYDROCHLORIDE
     Indication: PRODUCT USED FOR UNKNOWN INDICATION
     Route: 042
  3. ZOFRAN ODT [Suspect]
     Active Substance: ONDANSETRON HYDROCHLORIDE
     Indication: VOMITING IN PREGNANCY
     Route: 048
     Dates: start: 201309, end: 201403
  4. ONDANSETRON HYDROCHLORIDE. [Suspect]
     Active Substance: ONDANSETRON HYDROCHLORIDE
     Indication: PRODUCT USED FOR UNKNOWN INDICATION
     Route: 048

REACTIONS (24)
  - Injury [Unknown]
  - Cerebrovascular accident [Unknown]
  - Pain [Unknown]
  - Muscular weakness [Unknown]
  - Dyspnoea [Unknown]
  - Endometriosis [Unknown]
  - Emotional distress [Unknown]
  - Pelvic pain [Unknown]
  - Chest pain [Unknown]
  - Renal colic [Unknown]
  - Anxiety [Unknown]
  - Constipation [Unknown]
  - Maternal exposure during pregnancy [Unknown]
  - Epilepsy [Unknown]
  - Cholelithiasis [Unknown]
  - Pre-eclampsia [Unknown]
  - Product use in unapproved indication [Unknown]
  - Seizure [Unknown]
  - Dyspareunia [Unknown]
  - Cardiomegaly [Unknown]
  - Dizziness [Unknown]
  - Gestational hypertension [Unknown]
  - Dysuria [Unknown]
  - Dysmenorrhoea [Unknown]
